FAERS Safety Report 11117396 (Version 1)
Quarter: 2015Q2

REPORT INFORMATION
  Report Type: Spontaneous
  Country: None (occurrence: GB)
  Receive Date: 20150516
  Receipt Date: 20150516
  Transmission Date: 20150821
  Serious: Yes (Hospitalization, Other)
  Sender: FDA-Public Use
  Company Number: GB-ALLERGAN-1509181US

PATIENT
  Sex: Female

DRUGS (3)
  1. DEX UNK [Suspect]
     Active Substance: UNSPECIFIED INGREDIENT
     Indication: UVEITIS
     Dosage: 1 DF, Q1HR
     Route: 047
     Dates: start: 2012
  2. CHLORAMPHENICOL [Concomitant]
     Active Substance: CHLORAMPHENICOL
     Indication: UVEITIS
     Dosage: UNK UNK, Q2HR
     Dates: start: 2013
  3. DEX UNK [Suspect]
     Active Substance: UNSPECIFIED INGREDIENT
     Dosage: 1 DF, Q2HR
     Route: 047
     Dates: start: 2012, end: 201311

REACTIONS (10)
  - Blood sodium decreased [Unknown]
  - Eye discharge [Unknown]
  - Eye pain [Unknown]
  - Ocular discomfort [Unknown]
  - Keratopathy [Unknown]
  - Heart rate increased [Unknown]
  - Blood pressure decreased [Unknown]
  - Gastrointestinal disorder [Unknown]
  - Blood chloride decreased [Unknown]
  - Dry eye [Unknown]
